FAERS Safety Report 5827299-9 (Version None)
Quarter: 2008Q3

REPORT INFORMATION
  Report Type: 
  Country: None (occurrence: None)
  Receive Date: 20080725
  Receipt Date: 20080718
  Transmission Date: 20090109
  Serious: Yes (Other)
  Sender: FDA-Public Use
  Company Number: GXKR2008ES05861

PATIENT
  Age: 89 Year
  Sex: Female

DRUGS (11)
  1. OMEPRAZOLE [Suspect]
     Dosage: INTRAVENOUS, ORAL
     Route: 042
  2. PIPERACILLIN [Concomitant]
  3. TAZOBACTAM [Concomitant]
  4. METRONIDAZOLE [Concomitant]
  5. AMOXICILLIN W/CLAVULANIC ACID (AMOXICILLIN, CLAVULANIC ACID) [Concomitant]
  6. CARBIMAZOLE (CARBIMAZOLE) [Concomitant]
  7. BROMAZEPAM (BROMAZEPAM) [Concomitant]
  8. ACETAMINOPHEN [Concomitant]
  9. ENOXAPARIN SODIUM [Concomitant]
  10. TRANDOLAPRIL [Concomitant]
  11. INSULIN (INSULIN) [Concomitant]

REACTIONS (2)
  - ACUTE GENERALISED EXANTHEMATOUS PUSTULOSIS [None]
  - SKIN REACTION [None]
